FAERS Safety Report 7433078-1 (Version None)
Quarter: 2011Q2

REPORT INFORMATION
  Report Type: 
  Country: None (occurrence: None)
  Receive Date: 20110422
  Receipt Date: 20110413
  Transmission Date: 20111010
  Serious: Yes (Hospitalization, Other)
  Sender: FDA-Public Use
  Company Number: US-ASTRAZENECA-2011SE21871

PATIENT
  Age: 36 Year
  Sex: Male

DRUGS (2)
  1. NEXIUM [Suspect]
     Route: 048
  2. PROTONIX [Concomitant]

REACTIONS (6)
  - DRUG DOSE OMISSION [None]
  - DYSPEPSIA [None]
  - GASTRECTOMY [None]
  - ABDOMINAL PAIN UPPER [None]
  - GLOSSOPHARYNGEAL NERVE DISORDER [None]
  - GASTRIC OPERATION [None]
